FAERS Safety Report 20476578 (Version 1)
Quarter: 2022Q1

REPORT INFORMATION
  Report Type: Spontaneous
  Country: DE (occurrence: None)
  Receive Date: 20220215
  Receipt Date: 20220215
  Transmission Date: 20220424
  Serious: Yes (Other)
  Sender: FDA-Public Use
  Company Number: DE-ROCHE-3018279

PATIENT
  Sex: Female

DRUGS (1)
  1. OCREVUS [Suspect]
     Active Substance: OCRELIZUMAB
     Indication: Primary progressive multiple sclerosis
     Route: 065

REACTIONS (3)
  - Kidney infection [Unknown]
  - Urosepsis [Unknown]
  - Cystitis [Unknown]
